FAERS Safety Report 5190229-X (Version None)
Quarter: 2006Q4

REPORT INFORMATION
  Report Type: 
  Country: None (occurrence: None)
  Receive Date: 20061222
  Receipt Date: 20060802
  Transmission Date: 20070319
  Serious: No
  Sender: FDA-Public Use
  Company Number: US-AMGEN-US188634

PATIENT
  Sex: Female

DRUGS (25)
  1. ARANESP [Suspect]
     Indication: RENAL FAILURE CHRONIC
     Route: 058
     Dates: start: 20060524, end: 20060530
  2. LANTUS [Concomitant]
  3. INSULIN [Concomitant]
  4. LEVOTHROID [Concomitant]
  5. DARVOCET-N 100 [Concomitant]
  6. PREVACID [Concomitant]
  7. PLAVIX [Concomitant]
  8. PAXIL [Concomitant]
  9. TOPROL-XL [Concomitant]
  10. NEURONTIN [Concomitant]
  11. ULTRAM [Concomitant]
  12. MAGNESIUM OXIDE [Concomitant]
  13. HYDRALAZINE HYDROCHLORIDE [Concomitant]
  14. ATARAX [Concomitant]
  15. STARLIX [Concomitant]
     Route: 048
  16. VERAPAMIL [Concomitant]
  17. COZAAR [Concomitant]
  18. PREDNISONE TAB [Concomitant]
  19. ELAVIL [Concomitant]
  20. FOLIC ACID [Concomitant]
  21. LASIX [Concomitant]
  22. CELLCEPT [Concomitant]
  23. PROTONIX [Concomitant]
  24. CALCIUM [Concomitant]
  25. SULFASALAZINE [Concomitant]

REACTIONS (1)
  - HAEMOGLOBIN DECREASED [None]
